FAERS Safety Report 14841455 (Version 2)
Quarter: 2020Q3

REPORT INFORMATION
  Report Type: Spontaneous
  Country: DE (occurrence: DE)
  Receive Date: 20180503
  Receipt Date: 20180529
  Transmission Date: 20201105
  Serious: Yes (Death)
  Sender: FDA-Public Use
  Company Number: DE-AUROBINDO-AUR-APL-2018-023451

PATIENT
  Age: 71 Year
  Sex: Female

DRUGS (65)
  1. RAMIPRIL. [Suspect]
     Active Substance: RAMIPRIL
     Dosage: 5 DF, QD
     Route: 048
     Dates: start: 20041101, end: 20041102
  2. HYDROCHLOROTHIAZIDE. [Suspect]
     Active Substance: HYDROCHLOROTHIAZIDE
     Indication: ESSENTIAL HYPERTENSION
     Dosage: 25 MG, QD
     Route: 048
     Dates: start: 20041012, end: 20041031
  3. THIAMAZOLE [Suspect]
     Active Substance: METHIMAZOLE
     Indication: HYPERTHYROIDISM
     Dosage: 50 MG, UNK
     Route: 048
     Dates: start: 20041006, end: 20041105
  4. CLEXANE [Suspect]
     Active Substance: ENOXAPARIN SODIUM
     Indication: THROMBOSIS
     Dosage: 40 ML, BID
     Route: 058
     Dates: start: 20041011, end: 20041028
  5. METOCLOPRAMIDE. [Suspect]
     Active Substance: METOCLOPRAMIDE
     Dosage: UNK ()
     Route: 048
     Dates: start: 20041024, end: 20041025
  6. ALLOPURINOL. [Suspect]
     Active Substance: ALLOPURINOL
     Indication: HYPERURICAEMIA
     Dosage: 1 DF, QD
     Route: 048
     Dates: start: 20041024, end: 20041102
  7. POTASSIUM CHLORIDE. [Suspect]
     Active Substance: POTASSIUM CHLORIDE
     Dosage: 40 MMOL, QD
     Route: 042
     Dates: start: 20041027, end: 20041027
  8. LOPERAMIDE [Suspect]
     Active Substance: LOPERAMIDE
     Indication: DIARRHOEA
     Dosage: 2 DF, QD
     Route: 048
     Dates: start: 20041031, end: 20041031
  9. DEXTROSE. [Suspect]
     Active Substance: DEXTROSE
     Indication: HYPOGLYCAEMIA
     Dosage: UNK ()
     Route: 042
     Dates: start: 20041102, end: 20041102
  10. DERMATOP [Concomitant]
     Active Substance: PREDNICARBATE
     Indication: PRODUCT USED FOR UNKNOWN INDICATION
     Dosage: 2 DF, QD
     Route: 065
     Dates: start: 20041110, end: 20041110
  11. SORTIS [Suspect]
     Active Substance: ATORVASTATIN
     Indication: HYPERCHOLESTEROLAEMIA
     Dosage: 40 MG, QD
     Route: 048
     Dates: start: 20040729, end: 20041102
  12. BELOC ZOK [Suspect]
     Active Substance: METOPROLOL SUCCINATE
     Indication: ACUTE MYOCARDIAL INFARCTION
     Dosage: UNK
     Route: 048
     Dates: start: 20041012, end: 20041031
  13. LORAZEPAM. [Suspect]
     Active Substance: LORAZEPAM
     Indication: SLEEP DISORDER
     Dosage: 1 DF, QD
     Route: 048
     Dates: start: 20041014, end: 20041014
  14. BROTIZOLAM [Suspect]
     Active Substance: BROTIZOLAM
     Indication: SLEEP DISORDER
     Dosage: 1 DF, QD
     Route: 048
     Dates: start: 20041015, end: 20041024
  15. CLARITHROMYCIN. [Suspect]
     Active Substance: CLARITHROMYCIN
     Indication: PNEUMONIA
     Dosage: 250 MG, UNK
     Route: 048
     Dates: start: 20041018, end: 20041024
  16. PIPAMPERONE [Suspect]
     Active Substance: PIPAMPERONE
     Indication: DISORIENTATION
     Dosage: 1 DF, QD
     Route: 048
     Dates: start: 20041103, end: 20041104
  17. FERROUS SULFATE. [Suspect]
     Active Substance: FERROUS SULFATE
     Indication: MINERAL SUPPLEMENTATION
     Dosage: 1 DF, QD
     Route: 048
     Dates: start: 20041103, end: 20041107
  18. UNACID                             /00917901/ [Concomitant]
     Active Substance: AMPICILLIN SODIUM\SULBACTAM SODIUM
     Indication: PRODUCT USED FOR UNKNOWN INDICATION
     Dosage: 1 G, TID
     Route: 065
     Dates: start: 20041106, end: 20041106
  19. TAVANIC [Concomitant]
     Active Substance: LEVOFLOXACIN
     Indication: PRODUCT USED FOR UNKNOWN INDICATION
     Dosage: 500 MG, QD
     Route: 065
     Dates: start: 20041107, end: 20041110
  20. LANTUS [Suspect]
     Active Substance: INSULIN GLARGINE
     Indication: DIABETES MELLITUS
     Dosage: UNK ()
     Route: 058
     Dates: start: 20040729, end: 20041110
  21. POTASSIUM CITRATE. [Suspect]
     Active Substance: POTASSIUM CITRATE
     Indication: HYPOKALAEMIA
     Dosage: 1 DF, QD
     Route: 048
     Dates: start: 20001102, end: 20041104
  22. POTASSIUM CHLORIDE. [Suspect]
     Active Substance: POTASSIUM CHLORIDE
     Dosage: UNK ()
     Route: 065
     Dates: start: 20041101, end: 20041101
  23. FUROSEMIDE. [Suspect]
     Active Substance: FUROSEMIDE
     Dosage: 40 MG, QD
     Route: 042
     Dates: start: 20041102, end: 20041111
  24. PERFALGAN [Concomitant]
     Active Substance: ACETAMINOPHEN
     Indication: PRODUCT USED FOR UNKNOWN INDICATION
     Dosage: 1 G, UNK
     Route: 065
     Dates: start: 20041014, end: 20041014
  25. CLOPIDOGREL [Suspect]
     Active Substance: CLOPIDOGREL BISULFATE
     Indication: THROMBOSIS PROPHYLAXIS
     Dosage: 75 MG, BID
     Route: 048
     Dates: start: 20041005, end: 20041107
  26. DIGITOXIN [Suspect]
     Active Substance: DIGITOXIN
     Indication: CARDIAC FAILURE
     Dosage: UNK ()
     Route: 048
     Dates: start: 20041014, end: 20041027
  27. LORAZEPAM. [Suspect]
     Active Substance: LORAZEPAM
     Dosage: 1 DF, QD
     Route: 048
     Dates: start: 20041030, end: 20041030
  28. BROTIZOLAM [Suspect]
     Active Substance: BROTIZOLAM
     Dosage: 1 DF, QD
     Route: 048
     Dates: start: 20041103, end: 20041103
  29. BROTIZOLAM [Suspect]
     Active Substance: BROTIZOLAM
     Dosage: 1 DF, QD
     Route: 048
     Dates: start: 20041110, end: 20041110
  30. SODIUM CHLORIDE. [Suspect]
     Active Substance: SODIUM CHLORIDE
     Indication: FLUID REPLACEMENT
     Dosage: 500 ML, QD
     Route: 042
     Dates: start: 20041024, end: 20041027
  31. METOPROLOL. [Suspect]
     Active Substance: METOPROLOL
     Indication: PRODUCT USED FOR UNKNOWN INDICATION
     Dosage: 200 MG, QD
     Route: 048
     Dates: start: 20041101, end: 20041107
  32. POTASSIUM CHLORIDE. [Suspect]
     Active Substance: POTASSIUM CHLORIDE
     Indication: HYPOKALAEMIA
     Dosage: UNK ()
     Route: 065
     Dates: start: 20041025, end: 20041027
  33. MELPERONE HYDROCHLORIDE [Suspect]
     Active Substance: MELPERONE HYDROCHLORIDE
     Dosage: 1 ML, QD
     Route: 048
     Dates: start: 20041102, end: 20041107
  34. PREDNISOLONE SODIUM SUCCINATE [Concomitant]
     Active Substance: PREDNISOLONE SODIUM SUCCINATE
     Indication: PRODUCT USED FOR UNKNOWN INDICATION
     Dosage: UNK ()
     Route: 065
     Dates: start: 20041105, end: 20041110
  35. MORPHINE [Concomitant]
     Active Substance: MORPHINE
     Indication: PRODUCT USED FOR UNKNOWN INDICATION
     Dosage: 1 DF, BID
     Route: 065
     Dates: start: 20041106, end: 20041109
  36. DIGITOXIN [Concomitant]
     Active Substance: DIGITOXIN
     Indication: PRODUCT USED FOR UNKNOWN INDICATION
     Dosage: 5 DF, QD
     Route: 065
     Dates: start: 20041106, end: 20041108
  37. POLYSPECTRAN                       /00130201/ [Concomitant]
     Indication: PRODUCT USED FOR UNKNOWN INDICATION
     Dosage: 1 DF, TID
     Route: 065
     Dates: start: 20041108
  38. ZYRTEC [Concomitant]
     Active Substance: CETIRIZINE HYDROCHLORIDE
     Indication: PRODUCT USED FOR UNKNOWN INDICATION
     Dosage: 2 DF, QD
     Route: 065
     Dates: start: 20041110, end: 20041110
  39. HUMALOG [Suspect]
     Active Substance: INSULIN LISPRO
     Indication: DIABETES MELLITUS
     Dosage: 1 DF, TID
     Route: 058
     Dates: start: 20040729, end: 20041110
  40. SODIUM PERCHLORATE [Suspect]
     Active Substance: SODIUM PERCHLORATE
     Indication: HYPERTHYROIDISM
     Dosage: 20 GTT, TID
     Route: 048
     Dates: start: 20041006, end: 20041105
  41. TOREM                              /01036501/ [Suspect]
     Active Substance: TORSEMIDE
     Indication: RENAL FAILURE
     Dosage: UNK
     Route: 048
     Dates: start: 20041012, end: 20041031
  42. POTASSIUM CITRATE. [Suspect]
     Active Substance: POTASSIUM CITRATE
     Dosage: 1 DF, QD
     Route: 048
     Dates: start: 20041015, end: 20041020
  43. CARBAMAZEPINE. [Suspect]
     Active Substance: CARBAMAZEPINE
     Indication: AGITATION
     Dosage: 5 DF, BID
     Route: 048
     Dates: start: 20041101, end: 20041102
  44. PERFALGAN [Concomitant]
     Active Substance: ACETAMINOPHEN
     Dosage: UNK ()
     Route: 065
     Dates: start: 20041021, end: 20041021
  45. NOVALGIN (METAMIZOLE SODIUM) [Concomitant]
     Active Substance: METAMIZOLE SODIUM
     Indication: PRODUCT USED FOR UNKNOWN INDICATION
     Dosage: 20 GTT, QD
     Route: 065
     Dates: start: 20041017, end: 20041017
  46. FENISTIL [Concomitant]
     Active Substance: DIMETHINDENE
     Indication: PRODUCT USED FOR UNKNOWN INDICATION
     Dosage: 1 DF, TID
     Route: 065
     Dates: start: 20041104, end: 20041107
  47. ASPIRIN TABLETS [Suspect]
     Active Substance: ASPIRIN
     Indication: THROMBOSIS PROPHYLAXIS
     Dosage: 100 MG, QD
     Route: 048
     Dates: start: 20040729, end: 20041107
  48. RAMIPRIL. [Suspect]
     Active Substance: RAMIPRIL
     Indication: ESSENTIAL HYPERTENSION
     Dosage: 2.5 MG, QD
     Route: 048
     Dates: start: 20041007, end: 20041031
  49. PANTOZOL [Suspect]
     Active Substance: PANTOPRAZOLE SODIUM
     Indication: GASTROINTESTINAL ULCER
     Dosage: 40 MG, QD
     Route: 048
     Dates: start: 20041007, end: 20041031
  50. DIGITOXIN [Suspect]
     Active Substance: DIGITOXIN
     Dosage: UNK ()
     Route: 048
     Dates: start: 20041103, end: 20041111
  51. POTASSIUM CITRATE. [Suspect]
     Active Substance: POTASSIUM CITRATE
     Dosage: 1 DF, QD
     Route: 048
     Dates: start: 20041023, end: 20041025
  52. METOCLOPRAMIDE. [Suspect]
     Active Substance: METOCLOPRAMIDE
     Indication: NAUSEA
     Dosage: UNK ()
     Route: 048
     Dates: start: 20041023, end: 20041023
  53. POTASSIUM CHLORIDE. [Suspect]
     Active Substance: POTASSIUM CHLORIDE
     Dosage: 40 MMOL, QD
     Route: 042
     Dates: start: 20041102, end: 20041104
  54. MELPERONE HYDROCHLORIDE [Suspect]
     Active Substance: MELPERONE HYDROCHLORIDE
     Indication: SLEEP DISORDER
     Dosage: 1 ML, QD
     Route: 065
     Dates: start: 20041030, end: 20041031
  55. DEXTROSE. [Suspect]
     Active Substance: DEXTROSE
     Dosage: UNK ()
     Route: 042
     Dates: start: 20041108, end: 20041108
  56. TAZOBACTAM [Concomitant]
     Active Substance: TAZOBACTAM
     Indication: PRODUCT USED FOR UNKNOWN INDICATION
     Dosage: 4.5 MG, TID
     Route: 065
     Dates: start: 20041007, end: 20041015
  57. FLUNITRAZEPAM [Concomitant]
     Active Substance: FLUNITRAZEPAM
     Indication: PRODUCT USED FOR UNKNOWN INDICATION
     Dosage: 1 MG, QD
     Route: 065
     Dates: start: 20041018, end: 20041018
  58. HALOPERIDOL. [Concomitant]
     Active Substance: HALOPERIDOL
     Indication: PRODUCT USED FOR UNKNOWN INDICATION
     Dosage: 20 GTT, BID
     Route: 065
     Dates: start: 20041104, end: 20041105
  59. DIFLUCAN [Concomitant]
     Active Substance: FLUCONAZOLE
     Indication: PRODUCT USED FOR UNKNOWN INDICATION
     Dosage: 1 DF, QD
     Route: 065
     Dates: start: 20041106, end: 20041110
  60. FENISTIL [Concomitant]
     Active Substance: DIMETHINDENE
     Dosage: 1 DF, UNK
     Route: 065
     Dates: start: 20041105, end: 20041105
  61. PROMETHAZINE HYDROCHLORIDE. [Concomitant]
     Active Substance: PROMETHAZINE HYDROCHLORIDE
     Indication: PRODUCT USED FOR UNKNOWN INDICATION
     Dosage: 5 DF, BID
     Route: 065
     Dates: start: 20041105, end: 20041108
  62. ELECTROLYTES NOS [Suspect]
     Active Substance: ELECTROLYTES NOS
     Indication: FLUID REPLACEMENT
     Dosage: UNK ()
     Route: 042
     Dates: start: 20041002, end: 20041111
  63. TOREM                              /01036501/ [Suspect]
     Active Substance: TORSEMIDE
     Dosage: UNK
     Route: 048
     Dates: start: 20041102, end: 20041105
  64. METOCLOPRAMIDE. [Suspect]
     Active Substance: METOCLOPRAMIDE
     Dosage: UNK GTT, QD ()
     Route: 048
     Dates: start: 20041025, end: 20041028
  65. FUROSEMIDE. [Suspect]
     Active Substance: FUROSEMIDE
     Indication: POLYURIA
     Dosage: 10 MG, QD
     Route: 048
     Dates: start: 20041101, end: 20041101

REACTIONS (10)
  - Lip erosion [Fatal]
  - Purpura [Fatal]
  - Nikolsky^s sign [Fatal]
  - Stevens-Johnson syndrome [Fatal]
  - Ocular hyperaemia [Fatal]
  - Oral disorder [Fatal]
  - Swollen tongue [Fatal]
  - Conjunctivitis [Fatal]
  - Pruritus [Fatal]
  - Blister [Fatal]

NARRATIVE: CASE EVENT DATE: 20041104
